FAERS Safety Report 9802567 (Version 1)
Quarter: 2014Q1

REPORT INFORMATION
  Report Type: Report from Study
  Country: ES (occurrence: ES)
  Receive Date: 20140108
  Receipt Date: 20140108
  Transmission Date: 20141002
  Serious: Yes (Other)
  Sender: FDA-Public Use
  Company Number: ES-ROCHE-1327914

PATIENT
  Sex: 0

DRUGS (5)
  1. RITUXIMAB [Suspect]
     Indication: B-CELL LYMPHOMA
     Route: 065
  2. METHOTREXATE [Suspect]
     Indication: B-CELL LYMPHOMA
     Route: 065
  3. CYTARABINE [Suspect]
     Indication: B-CELL LYMPHOMA
     Route: 065
  4. VINCRISTINE [Suspect]
     Indication: B-CELL LYMPHOMA
     Route: 065
  5. DEXAMETHASONE [Suspect]
     Indication: B-CELL LYMPHOMA
     Route: 065

REACTIONS (6)
  - Neutropenia [Unknown]
  - Thrombocytopenia [Unknown]
  - Infection [Unknown]
  - Gastrointestinal toxicity [Unknown]
  - Nephropathy toxic [Unknown]
  - Hepatotoxicity [Unknown]
